FAERS Safety Report 16418701 (Version 2)
Quarter: 2019Q3

REPORT INFORMATION
  Report Type: Report from Study
  Country: JP (occurrence: JP)
  Receive Date: 20190612
  Receipt Date: 20190812
  Transmission Date: 20191004
  Serious: Yes (Other)
  Sender: FDA-Public Use
  Company Number: JP-UCBSA-2019024018

PATIENT
  Age: 56 Year
  Sex: Male
  Weight: 55 kg

DRUGS (10)
  1. VIMPAT [Suspect]
     Active Substance: LACOSAMIDE
     Dosage: 100 MILLIGRAM, 2X/DAY (BID)
     Route: 048
     Dates: start: 20190313, end: 20190326
  2. VIMPAT [Suspect]
     Active Substance: LACOSAMIDE
     Dosage: 150 MILLIGRAM, 2X/DAY (BID)
     Route: 048
     Dates: start: 20190327, end: 20190402
  3. VIMPAT [Suspect]
     Active Substance: LACOSAMIDE
     Dosage: 200 MILLIGRAM, 2X/DAY (BID)
     Route: 048
     Dates: start: 20190403, end: 20190508
  4. TEMODAL [Concomitant]
     Active Substance: TEMOZOLOMIDE
     Indication: PRODUCT USED FOR UNKNOWN INDICATION
     Dosage: 340 MILLIGRAM, ONCE DAILY (QD)
     Route: 048
     Dates: start: 20190314, end: 20190318
  5. E KEPPRA [Suspect]
     Active Substance: LEVETIRACETAM
     Indication: FOCAL DYSCOGNITIVE SEIZURES
     Dosage: 1000 MILLIGRAM, ONCE DAILY (QD)
     Route: 048
     Dates: end: 20190508
  6. TEMODAL [Concomitant]
     Active Substance: TEMOZOLOMIDE
     Dosage: 340 MILLIGRAM, ONCE DAILY (QD)
     Route: 048
     Dates: start: 20190401, end: 20190415
  7. DECADRON [Concomitant]
     Active Substance: DEXAMETHASONE
     Indication: PRODUCT USED FOR UNKNOWN INDICATION
     Route: 048
     Dates: start: 20190417, end: 20190601
  8. FAMOTIDINE. [Concomitant]
     Active Substance: FAMOTIDINE
     Indication: PRODUCT USED FOR UNKNOWN INDICATION
     Route: 048
     Dates: start: 20190417, end: 20190601
  9. VIMPAT [Suspect]
     Active Substance: LACOSAMIDE
     Indication: FOCAL DYSCOGNITIVE SEIZURES
     Dosage: 50 MILLIGRAM, 2X/DAY (BID)
     Route: 048
     Dates: start: 20190307, end: 20190312
  10. GABAPEN [Suspect]
     Active Substance: GABAPENTIN
     Indication: PRODUCT USED FOR UNKNOWN INDICATION
     Dosage: 1200 MG DAILY
     Route: 048
     Dates: start: 20190424, end: 20190508

REACTIONS (1)
  - Pancytopenia [Recovered/Resolved]

NARRATIVE: CASE EVENT DATE: 20190508
